FAERS Safety Report 8174175 (Version 3)
Quarter: 2013Q4

REPORT INFORMATION
  Report Type: Spontaneous
  Country: US (occurrence: US)
  Receive Date: 20111010
  Receipt Date: 20131107
  Transmission Date: 20140711
  Serious: Yes (Hospitalization, Other)
  Sender: FDA-Public Use
  Company Number: US-AMGEN-USASP2011051064

PATIENT
  Age: 43 Year
  Sex: Female

DRUGS (1)
  1. ENBREL [Suspect]
     Indication: PSORIASIS
     Dosage: 50 MG, 2 TIMES/WK
     Route: 065
     Dates: start: 20060908

REACTIONS (8)
  - Full blood count decreased [Recovered/Resolved]
  - Female genital tract fistula [Recovered/Resolved]
  - Haemoglobin decreased [Recovered/Resolved]
  - Fistula [Not Recovered/Not Resolved]
  - Staphylococcal abscess [Recovered/Resolved]
  - Pneumonia [Recovered/Resolved]
  - Crohn^s disease [Recovered/Resolved]
  - Abdominal abscess [Not Recovered/Not Resolved]
